FAERS Safety Report 5076155-5 (Version None)
Quarter: 2006Q3

REPORT INFORMATION
  Report Type: 
  Country: None (occurrence: None)
  Receive Date: 20060725
  Receipt Date: 20060511
  Transmission Date: 20061208
  Serious: No
  Sender: FDA-Public Use
  Company Number: 200610794BWH

PATIENT
  Age: 58 Year
  Sex: Male
  Weight: 64.4108 kg

DRUGS (6)
  1. NEXAVAR [Suspect]
     Indication: RENAL CELL CARCINOMA RECURRENT
     Dosage: SEE IMAGE
     Route: 048
     Dates: start: 20060125, end: 20060211
  2. NEXAVAR [Suspect]
     Indication: RENAL CELL CARCINOMA RECURRENT
     Dosage: SEE IMAGE
     Route: 048
     Dates: start: 20060201
  3. ADVIL [Concomitant]
  4. HYDROXYZINE [Concomitant]
  5. LISINOPRIL [Concomitant]
  6. ALLOPURINOL [Concomitant]

REACTIONS (35)
  - ABDOMINAL PAIN [None]
  - ARTHRALGIA [None]
  - BACK PAIN [None]
  - CHILLS [None]
  - CONSTIPATION [None]
  - COUGH [None]
  - DECREASED APPETITE [None]
  - DRY SKIN [None]
  - DYSGEUSIA [None]
  - ERYTHEMA [None]
  - FATIGUE [None]
  - FEELING COLD [None]
  - FLUSHING [None]
  - GAIT DISTURBANCE [None]
  - GINGIVAL BLEEDING [None]
  - GINGIVAL PAIN [None]
  - HYPERKERATOSIS [None]
  - INFLUENZA LIKE ILLNESS [None]
  - MUSCULOSKELETAL STIFFNESS [None]
  - OEDEMA PERIPHERAL [None]
  - PAIN [None]
  - PAIN IN EXTREMITY [None]
  - PAIN OF SKIN [None]
  - PALMAR-PLANTAR ERYTHRODYSAESTHESIA SYNDROME [None]
  - PHARYNGOLARYNGEAL PAIN [None]
  - PLANTAR ERYTHEMA [None]
  - PRURITUS GENERALISED [None]
  - RASH [None]
  - RASH ERYTHEMATOUS [None]
  - RASH PRURITIC [None]
  - RHINORRHOEA [None]
  - SKIN DISCOLOURATION [None]
  - SKIN EXFOLIATION [None]
  - SKIN FISSURES [None]
  - STOMATITIS [None]
